FAERS Safety Report 25600341 (Version 1)
Quarter: 2025Q3

REPORT INFORMATION
  Report Type: Spontaneous
  Country: EU (occurrence: EU)
  Receive Date: 20250724
  Receipt Date: 20250724
  Transmission Date: 20251020
  Serious: Yes (Death)
  Sender: MACLEODS
  Company Number: EU-MACLEODS PHARMA-MAC2025054222

PATIENT

DRUGS (5)
  1. QUETIAPINE [Suspect]
     Active Substance: QUETIAPINE
     Indication: Product used for unknown indication
     Route: 065
  2. AMPHETAMINE [Suspect]
     Active Substance: AMPHETAMINE
     Indication: Product used for unknown indication
     Route: 065
  3. SODIUM NITRATE [Suspect]
     Active Substance: SODIUM NITRATE
     Indication: Product used for unknown indication
     Route: 065
  4. ATROPINE [Suspect]
     Active Substance: ATROPINE
     Indication: Product used for unknown indication
     Route: 065
  5. SODIUM NITRITE [Suspect]
     Active Substance: SODIUM NITRITE
     Indication: Product used for unknown indication
     Route: 065

REACTIONS (11)
  - Completed suicide [Fatal]
  - Methaemoglobinaemia [Fatal]
  - Intentional self-injury [Fatal]
  - Respiratory distress [Fatal]
  - Pulmonary congestion [Fatal]
  - Brain oedema [Fatal]
  - Lividity [Fatal]
  - Multiple organ dysfunction syndrome [Fatal]
  - Toxicity to various agents [Fatal]
  - Hypoxia [Fatal]
  - Pulmonary oedema [Fatal]
